FAERS Safety Report 23837758 (Version 1)
Quarter: 2024Q2

REPORT INFORMATION
  Report Type: Spontaneous
  Country: US (occurrence: None)
  Receive Date: 20240508
  Receipt Date: 20240508
  Transmission Date: 20240716
  Serious: Yes (Hospitalization)
  Sender: FDA-Public Use
  Company Number: None

PATIENT
  Age: 65 Year

DRUGS (1)
  1. PREVYMIS [Suspect]
     Active Substance: LETERMOVIR
     Indication: Graft versus host disease
     Dosage: FREQUENCY : DAILY;?

REACTIONS (5)
  - Product supply issue [None]
  - Product dispensing error [None]
  - Infection [None]
  - Acute myeloid leukaemia [None]
  - Disease recurrence [None]
